FAERS Safety Report 9015291 (Version 1)
Quarter: 2013Q1

REPORT INFORMATION
  Report Type: Report from Study
  Country: US (occurrence: US)
  Receive Date: 20130116
  Receipt Date: 20130116
  Transmission Date: 20140127
  Serious: Yes (Other)
  Sender: FDA-Public Use
  Company Number: US-009507513-1301USA003266

PATIENT
  Sex: 0

DRUGS (3)
  1. BOCEPREVIR [Suspect]
     Indication: HEPATITIS C
  2. INTERFERON (UNSPECIFIED) [Suspect]
     Indication: HEPATITIS C
  3. RIBAVIRIN [Suspect]
     Indication: HEPATITIS C

REACTIONS (1)
  - Gastrointestinal haemorrhage [Unknown]
